FAERS Safety Report 24048271 (Version 1)
Quarter: 2024Q3

REPORT INFORMATION
  Report Type: Spontaneous
  Country: US (occurrence: US)
  Receive Date: 20240704
  Receipt Date: 20240704
  Transmission Date: 20241016
  Serious: No
  Sender: SANDOZ
  Company Number: US-SANDOZ-SDZ2023US073042

PATIENT
  Sex: Female

DRUGS (2)
  1. ESTRADIOL [Suspect]
     Active Substance: ESTRADIOL
     Indication: Product used for unknown indication
     Dosage: UNK, 0.1MG/1D 4TTSM
     Route: 065
  2. ESTRADIOL [Suspect]
     Active Substance: ESTRADIOL
     Dosage: 0.1MG/1D 4TTSM, WEEKLY
     Route: 065

REACTIONS (3)
  - Symptom recurrence [Unknown]
  - Incorrect dose administered [Unknown]
  - Product adhesion issue [Unknown]
